FAERS Safety Report 9157023 (Version 1)
Quarter: 2013Q1

REPORT INFORMATION
  Report Type: Spontaneous
  Country: US (occurrence: US)
  Receive Date: 20130312
  Receipt Date: 20130312
  Transmission Date: 20140127
  Serious: No
  Sender: FDA-Public Use
  Company Number: US-PFIZER INC-2013080320

PATIENT
  Sex: Female

DRUGS (2)
  1. LYRICA [Suspect]
     Dosage: 25 MG, 3X/DAY FOR ONE WEEK
  2. LYRICA [Suspect]
     Dosage: INCREASE BY ONE PILL EVERY 4 DAYS NOT EXCEEDING MAXIMUM 100MG

REACTIONS (1)
  - Nausea [Unknown]
